FAERS Safety Report 16841775 (Version 1)
Quarter: 2019Q3

REPORT INFORMATION
  Report Type: Report from Study
  Country: GB (occurrence: GB)
  Receive Date: 20190923
  Receipt Date: 20190923
  Transmission Date: 20191005
  Serious: Yes (Other)
  Sender: FDA-Public Use
  Company Number: PHHY2019GB152381

PATIENT
  Sex: Female

DRUGS (1)
  1. SANDOSTATIN LAR DEPOT [Suspect]
     Active Substance: OCTREOTIDE ACETATE
     Indication: NEUROENDOCRINE TUMOUR
     Dosage: 30 MG, Q4W
     Route: 030

REACTIONS (10)
  - Abdominal pain [Unknown]
  - Pain in extremity [Unknown]
  - Hepatic infection [Unknown]
  - Malaise [Unknown]
  - Flushing [Unknown]
  - Musculoskeletal pain [Unknown]
  - Angina pectoris [Recovered/Resolved]
  - Dyspnoea [Unknown]
  - Tremor [Unknown]
  - Pain [Unknown]
